FAERS Safety Report 6280597-X (Version None)
Quarter: 2009Q3

REPORT INFORMATION
  Report Type: 
  Country: None (occurrence: None)
  Receive Date: 20090724
  Receipt Date: 20080912
  Transmission Date: 20100115
  Serious: Yes (Hospitalization)
  Sender: FDA-Public Use
  Company Number: A0748460A

PATIENT
  Age: 72 Year
  Sex: Female
  Weight: 71.4 kg

DRUGS (4)
  1. AVANDIA [Suspect]
     Dosage: 4MG PER DAY
     Route: 048
     Dates: start: 20050304, end: 20071019
  2. UNSPECIFIED MEDICATION [Concomitant]
  3. IMIPRAMINE [Concomitant]
  4. BLOOD PRESSURE MEDICATION [Concomitant]

REACTIONS (1)
  - CARDIAC FAILURE CONGESTIVE [None]
